FAERS Safety Report 6304658-1 (Version None)
Quarter: 2009Q3

REPORT INFORMATION
  Report Type: 
  Country: None (occurrence: None)
  Receive Date: 20090811
  Receipt Date: 20090806
  Transmission Date: 20100115
  Serious: No
  Sender: FDA-Public Use
  Company Number: US-B.I. PHARMACEUTICALS,INC./RIDGEFIELD-2009-BP-08685BP

PATIENT
  Age: 69 Year
  Sex: Male

DRUGS (4)
  1. FLOMAX [Suspect]
     Indication: BENIGN PROSTATIC HYPERPLASIA
     Dosage: 0.4 MG
     Route: 048
     Dates: start: 20070101
  2. AVODART [Suspect]
  3. FLONASE [Concomitant]
  4. OMEPRAZOLE [Concomitant]

REACTIONS (6)
  - ASTHENIA [None]
  - HEADACHE [None]
  - LIBIDO DECREASED [None]
  - SINUS CONGESTION [None]
  - SINUS DISORDER [None]
  - SLUGGISHNESS [None]
